FAERS Safety Report 7452755-X (Version None)
Quarter: 2011Q2

REPORT INFORMATION
  Report Type: 
  Country: None (occurrence: None)
  Receive Date: 20110502
  Receipt Date: 20101105
  Transmission Date: 20111010
  Serious: No
  Sender: FDA-Public Use
  Company Number: US-ASTRAZENECA-2010SE52916

PATIENT
  Age: 604 Month
  Sex: Female
  Weight: 57.6 kg

DRUGS (12)
  1. SEROQUEL XR [Suspect]
     Indication: BIPOLAR DISORDER
     Route: 048
     Dates: start: 20100101
  2. LORCET TABS [Concomitant]
  3. NEXIUM [Suspect]
     Indication: GASTROOESOPHAGEAL REFLUX DISEASE
     Route: 048
     Dates: start: 20090101
  4. PROMETHAZINE [Concomitant]
  5. LOPERIDINE [Concomitant]
  6. SYNTHROID [Concomitant]
  7. KLONOPIN [Concomitant]
  8. OXYBUTYNIN [Concomitant]
  9. BACLOFEN [Concomitant]
  10. SEROQUEL XR [Suspect]
     Indication: PANIC ATTACK
     Route: 048
     Dates: start: 20100101
  11. ADDERALL 10 [Concomitant]
  12. SEROQUEL XR [Suspect]
     Indication: ANXIETY
     Route: 048
     Dates: start: 20100101

REACTIONS (3)
  - VOMITING [None]
  - ENDOSCOPY [None]
  - DYSPHAGIA [None]
